FAERS Safety Report 8953837 (Version 1)
Quarter: 2012Q4

REPORT INFORMATION
  Report Type: 
  Country: DE (occurrence: DE)
  Receive Date: 20121206
  Receipt Date: 20121206
  Transmission Date: 20130627
  Serious: Yes (Other)
  Sender: FDA-Public Use
  Company Number: DE-BAXTER-2012BAX026174

PATIENT

DRUGS (3)
  1. ENDOXAN 1G [Suspect]
     Indication: LUPUS NEPHRITIS
     Dosage: 0.5 G/M2
     Route: 042
  2. ENDOXAN 1G [Suspect]
     Dosage: INCREASED BY 250 MG ACCORDING TO WBC
     Route: 042
  3. MESNA [Concomitant]
     Indication: PROPHYLAXIS
     Route: 065

REACTIONS (1)
  - Herpes zoster [Unknown]
